FAERS Safety Report 6661354-9 (Version None)
Quarter: 2010Q1

REPORT INFORMATION
  Report Type: 
  Country: None (occurrence: None)
  Receive Date: 20100329
  Receipt Date: 20100315
  Transmission Date: 20100710
  Serious: Yes (Hospitalization, Other)
  Sender: FDA-Public Use
  Company Number: 2009AP003362

PATIENT
  Age: 52 Year
  Sex: Female
  Weight: 93 kg

DRUGS (7)
  1. TRAZODONE HYDROCHLORIDE [Suspect]
     Indication: SLEEP DISORDER
     Dosage: QD
     Dates: start: 20090730
  2. REBIF [Suspect]
     Indication: MULTIPLE SCLEROSIS
     Dosage: 44 UG; TIW; SC
     Route: 058
     Dates: start: 20090625
  3. NEURONTIN [Suspect]
     Indication: NEUROPATHY PERIPHERAL
     Dates: start: 20000101, end: 20090730
  4. CLONAZEPAM [Suspect]
     Indication: TREMOR
     Dates: end: 20090730
  5. EFFEXOR [Suspect]
     Indication: HOT FLUSH
     Dates: end: 20090730
  6. TRAMADOL HCL [Suspect]
     Indication: PAIN
     Dates: end: 20090730
  7. GLATIRAMER ACETATE [Concomitant]

REACTIONS (8)
  - ACCIDENTAL OVERDOSE [None]
  - CONVULSION [None]
  - DRUG WITHDRAWAL SYNDROME [None]
  - DYSKINESIA [None]
  - FEELING OF BODY TEMPERATURE CHANGE [None]
  - LOSS OF CONSCIOUSNESS [None]
  - RETCHING [None]
  - TONGUE BITING [None]
